FAERS Safety Report 7716634-2 (Version None)
Quarter: 2011Q3

REPORT INFORMATION
  Report Type: 
  Country: None (occurrence: None)
  Receive Date: 20110829
  Receipt Date: 20110823
  Transmission Date: 20111222
  Serious: Yes (Other)
  Sender: FDA-Public Use
  Company Number: US-ABBOTT-11P-163-0848608-00

PATIENT
  Sex: Female
  Weight: 35.412 kg

DRUGS (7)
  1. HUMIRA [Suspect]
     Indication: CROHN'S DISEASE
     Dates: start: 20070101
  2. CIPROFLOXACIN [Concomitant]
     Indication: CROHN'S DISEASE
  3. KLONOPIN [Concomitant]
     Indication: CONVULSION
  4. ASPIRIN [Concomitant]
     Indication: DYSMENORRHOEA
  5. FLAGYL [Concomitant]
     Indication: CROHN'S DISEASE
  6. NEXIUM [Concomitant]
     Indication: GASTROOESOPHAGEAL REFLUX DISEASE
  7. ASPIRIN [Concomitant]
     Indication: HEADACHE

REACTIONS (3)
  - ABDOMINAL PAIN [None]
  - COLONIC OBSTRUCTION [None]
  - RECTAL HAEMORRHAGE [None]
